FAERS Safety Report 5201823-1 (Version None)
Quarter: 2007Q1

REPORT INFORMATION
  Report Type: 
  Country: None (occurrence: None)
  Receive Date: 20070104
  Receipt Date: 20061221
  Transmission Date: 20070707
  Serious: Yes (Hospitalization)
  Sender: FDA-Public Use
  Company Number: 234181

PATIENT
  Age: 74 Year
  Sex: Male
  Weight: 43 kg

DRUGS (1)
  1. RANIBIZUMAB (RANIBIZUMAB) PWDR + SOLVENT, INJECTION SOLN [Suspect]
     Indication: MACULAR DEGENERATION
     Dosage: 500 AUG, 1/MONTH, INTRAVITREAL
     Dates: start: 20060825

REACTIONS (2)
  - ANGINA PECTORIS [None]
  - PALPITATIONS [None]
